FAERS Safety Report 11159859 (Version 4)
Quarter: 2016Q4

REPORT INFORMATION
  Report Type: Report from Study
  Country: MX (occurrence: MX)
  Receive Date: 20150603
  Receipt Date: 20161005
  Transmission Date: 20170206
  Serious: Yes (Other)
  Sender: FDA-Public Use
  Company Number: PHHY2014MX041033

PATIENT
  Sex: Female

DRUGS (3)
  1. ONBREZ BREEZHALER [Suspect]
     Active Substance: INDACATEROL
     Indication: CHRONIC OBSTRUCTIVE PULMONARY DISEASE
     Dosage: 150 UG, QD
     Route: 055
     Dates: start: 2010
  2. SPIRIVA [Concomitant]
     Active Substance: TIOTROPIUM BROMIDE MONOHYDRATE
     Indication: CHRONIC OBSTRUCTIVE PULMONARY DISEASE
     Dosage: AT NIGHTS THEN CHANGED THE ORDER OF MEDICINE
     Route: 055
  3. ATACAND [Concomitant]
     Active Substance: CANDESARTAN CILEXETIL
     Indication: HYPERTENSION
     Route: 065

REACTIONS (11)
  - Abdominal hernia [Unknown]
  - Renal failure [Unknown]
  - Cough [Unknown]
  - Dyspnoea [Unknown]
  - Nausea [Not Recovered/Not Resolved]
  - Insomnia [Recovering/Resolving]
  - Bronchitis [Unknown]
  - Bone pain [Not Recovered/Not Resolved]
  - Fluid retention [Unknown]
  - Productive cough [Unknown]
  - Inflammation [Unknown]
